FAERS Safety Report 14665898 (Version 1)
Quarter: 2018Q1

REPORT INFORMATION
  Report Type: Spontaneous
  Country: US (occurrence: US)
  Receive Date: 20180321
  Receipt Date: 20180321
  Transmission Date: 20180509
  Serious: No
  Sender: FDA-Public Use
  Company Number: US-TEVA-2018-US-863641

PATIENT

DRUGS (1)
  1. METHOTREXATE SODIUM. [Suspect]
     Active Substance: METHOTREXATE SODIUM
     Dates: start: 20180212

REACTIONS (2)
  - Skin burning sensation [Unknown]
  - Skin reaction [Unknown]

NARRATIVE: CASE EVENT DATE: 20180215
